FAERS Safety Report 11783149 (Version 2)
Quarter: 2016Q1

REPORT INFORMATION
  Report Type: Spontaneous
  Country: GB (occurrence: GB)
  Receive Date: 20151127
  Receipt Date: 20160119
  Transmission Date: 20160525
  Serious: Yes (Hospitalization, Other)
  Sender: FDA-Public Use
  Company Number: GB-NOVOPROD-471417

PATIENT
  Age: 70 Year
  Sex: Male
  Weight: 94.2 kg

DRUGS (1)
  1. NOVORAPID [Suspect]
     Active Substance: INSULIN ASPART
     Indication: TYPE 1 DIABETES MELLITUS
     Dosage: 27 IU, QD
     Route: 058

REACTIONS (5)
  - Acute kidney injury [Recovered/Resolved]
  - Erosive duodenitis [Unknown]
  - Product physical issue [Recovered/Resolved]
  - Oesophagitis [Unknown]
  - Diabetic ketoacidosis [Recovered/Resolved]

NARRATIVE: CASE EVENT DATE: 20151110
